FAERS Safety Report 18482925 (Version 1)
Quarter: 2020Q4

REPORT INFORMATION
  Report Type: Spontaneous
  Country: US (occurrence: US)
  Receive Date: 20201110
  Receipt Date: 20201110
  Transmission Date: 20210114
  Serious: No
  Sender: FDA-Public Use
  Company Number: US-009507513-2010USA010661

PATIENT
  Age: 6 Month
  Sex: Male

DRUGS (3)
  1. SINGULAIR [Suspect]
     Active Substance: MONTELUKAST SODIUM
     Indication: MASTOCYTOSIS
     Dosage: UNK
  2. CETRIZINE [Concomitant]
     Active Substance: CETIRIZINE HYDROCHLORIDE
     Indication: MASTOCYTOSIS
  3. RANITIDINE. [Concomitant]
     Active Substance: RANITIDINE
     Indication: MASTOCYTOSIS

REACTIONS (1)
  - Product use in unapproved indication [Unknown]
